FAERS Safety Report 5514980-4 (Version None)
Quarter: 2007Q4

REPORT INFORMATION
  Report Type: 
  Country: None (occurrence: None)
  Receive Date: 20071113
  Receipt Date: 20070628
  Transmission Date: 20080405
  Serious: No
  Sender: FDA-Public Use
  Company Number: A0625851A

PATIENT
  Age: 71 Year
  Sex: Male
  Weight: 75.5 kg

DRUGS (8)
  1. COREG [Suspect]
     Route: 048
     Dates: start: 20060720
  2. PRAVACHOL [Concomitant]
  3. LISINOPRIL [Concomitant]
  4. XANAX [Concomitant]
  5. RESTORIL [Concomitant]
  6. ASPIRIN [Concomitant]
  7. VITAMINS [Concomitant]
  8. GLUCOSAMINE SULFATE [Concomitant]

REACTIONS (15)
  - ASTHENIA [None]
  - BLOOD PRESSURE DECREASED [None]
  - CHILLS [None]
  - COUGH [None]
  - FATIGUE [None]
  - FEELING HOT [None]
  - HEART RATE DECREASED [None]
  - HEART RATE INCREASED [None]
  - INFLUENZA LIKE ILLNESS [None]
  - LIBIDO DECREASED [None]
  - MUSCULAR WEAKNESS [None]
  - PHARMACEUTICAL PRODUCT COMPLAINT [None]
  - PHARYNGOLARYNGEAL PAIN [None]
  - SLUGGISHNESS [None]
  - WEIGHT DECREASED [None]
